FAERS Safety Report 8806415 (Version 2)
Quarter: 2012Q4

REPORT INFORMATION
  Report Type: Spontaneous
  Country: US (occurrence: None)
  Receive Date: 20120918
  Receipt Date: 20121009
  Transmission Date: 20130627
  Serious: Yes (Hospitalization, Other)
  Sender: FDA-Public Use
  Company Number: 2012P1056283

PATIENT
  Sex: Female

DRUGS (4)
  1. ETODOLAC [Suspect]
     Indication: MULTIPLE SCLEROSIS
  2. ETODOLAC [Suspect]
     Indication: PAIN
  3. REBIF [Suspect]
     Indication: MULTIPLE SCLEROSIS
     Route: 058
     Dates: start: 20090610
  4. METFORMIN [Suspect]
     Indication: BLOOD SUGAR INCREASED
     Dates: start: 2012, end: 2012

REACTIONS (11)
  - Chest pain [None]
  - Abdominal discomfort [None]
  - Blood glucose increased [None]
  - Influenza like illness [None]
  - Pyrexia [None]
  - Chills [None]
  - Insomnia [None]
  - Ear pain [None]
  - Temporomandibular joint syndrome [None]
  - Asthma [None]
  - Fatigue [None]
